FAERS Safety Report 5891671-1 (Version None)
Quarter: 2008Q3

REPORT INFORMATION
  Report Type: 
  Country: None (occurrence: None)
  Receive Date: 20080922
  Receipt Date: 20080911
  Transmission Date: 20090109
  Serious: Yes (Other)
  Sender: FDA-Public Use
  Company Number: DE-PFIZER INC-2008058466

PATIENT
  Sex: Female
  Weight: 77 kg

DRUGS (15)
  1. AROMASIN [Suspect]
     Indication: BREAST CANCER
     Route: 048
     Dates: start: 20080508, end: 20080714
  2. INSULIN [Concomitant]
     Indication: TYPE 2 DIABETES MELLITUS
  3. ASPIRIN [Concomitant]
     Route: 048
  4. CALCIUM ACETATE [Concomitant]
     Route: 048
  5. PHOSPHONORM [Concomitant]
     Route: 048
  6. DIGITOXIN INJ [Concomitant]
     Route: 048
  7. LEVOTHYROXINE SODIUM [Concomitant]
     Route: 048
  8. OMEP [Concomitant]
     Route: 048
  9. LANTUS [Concomitant]
  10. HUMALOG [Concomitant]
  11. LACTULOSE [Concomitant]
     Route: 048
  12. METOPROLOL SUCCINATE [Concomitant]
     Route: 048
  13. DYNEPO [Concomitant]
  14. FERRLECIT [Concomitant]
  15. DEKRISTOL [Concomitant]

REACTIONS (1)
  - DIABETES MELLITUS INADEQUATE CONTROL [None]
